FAERS Safety Report 4836244-4 (Version None)
Quarter: 2005Q4

REPORT INFORMATION
  Report Type: 
  Country: None (occurrence: None)
  Receive Date: 20051123
  Receipt Date: 20051117
  Transmission Date: 20060501
  Serious: Yes (Other)
  Sender: FDA-Public Use
  Company Number: US-JNJFOC-20051104893

PATIENT
  Sex: Female
  Weight: 51.26 kg

DRUGS (1)
  1. ORTHO EVRA [Suspect]
     Route: 062
     Dates: start: 20030101, end: 20051008

REACTIONS (3)
  - ECHOCARDIOGRAM ABNORMAL [None]
  - ELECTROCARDIOGRAM T WAVE ABNORMAL [None]
  - OFF LABEL USE [None]
